FAERS Safety Report 5149373-5 (Version None)
Quarter: 2006Q4

REPORT INFORMATION
  Report Type: 
  Country: None (occurrence: None)
  Receive Date: 20061113
  Receipt Date: 20051129
  Transmission Date: 20070319
  Serious: No
  Sender: FDA-Public Use
  Company Number: 426836

PATIENT
  Sex: Female

DRUGS (3)
  1. COREG [Suspect]
     Dosage: 12.5MG TWICE PER DAY
     Route: 048
  2. AMBIEN [Concomitant]
  3. PREMPRO [Concomitant]

REACTIONS (1)
  - DRY MOUTH [None]
